FAERS Safety Report 20372001 (Version 4)
Quarter: 2023Q4

REPORT INFORMATION
  Report Type: Spontaneous
  Country: US (occurrence: US)
  Receive Date: 20220124
  Receipt Date: 20231025
  Transmission Date: 20240110
  Serious: Yes (Hospitalization, Other)
  Sender: FDA-Public Use
  Company Number: US-GILEAD-2022-0566459

PATIENT
  Sex: Male
  Weight: 97.506 kg

DRUGS (26)
  1. TRUVADA [Suspect]
     Active Substance: EMTRICITABINE\TENOFOVIR DISOPROXIL FUMARATE
     Indication: HIV infection
     Dosage: UNK
     Route: 048
     Dates: start: 2007
  2. TRUVADA [Suspect]
     Active Substance: EMTRICITABINE\TENOFOVIR DISOPROXIL FUMARATE
     Dosage: UNK
     Route: 048
     Dates: start: 200902, end: 201609
  3. BIKTARVY [Concomitant]
     Active Substance: BICTEGRAVIR SODIUM\EMTRICITABINE\TENOFOVIR ALAFENAMIDE FUMARATE
  4. DESCOVY [Concomitant]
     Active Substance: EMTRICITABINE\TENOFOVIR ALAFENAMIDE FUMARATE
  5. COMBIVIR [Concomitant]
     Active Substance: LAMIVUDINE\ZIDOVUDINE
  6. CRIXIVAN [Concomitant]
     Active Substance: INDINAVIR SULFATE
  7. EPIVIR [Concomitant]
     Active Substance: LAMIVUDINE
  8. NORVIR [Concomitant]
     Active Substance: RITONAVIR
  9. PREZCOBIX [Concomitant]
     Active Substance: COBICISTAT\DARUNAVIR ETHANOLATE
  10. PREZISTA [Concomitant]
     Active Substance: DARUNAVIR ETHANOLATE
  11. RETROVIR [Concomitant]
     Active Substance: ZIDOVUDINE
  12. VIDEX [Concomitant]
     Active Substance: DIDANOSINE
  13. VIRAMUNE [Concomitant]
     Active Substance: NEVIRAPINE
  14. ALPRAZOLAM [Concomitant]
     Active Substance: ALPRAZOLAM
  15. AMITRIPTYLINE [Concomitant]
     Active Substance: AMITRIPTYLINE
  16. CITALOPRAM [Concomitant]
     Active Substance: CITALOPRAM HYDROBROMIDE
  17. CLONAZEPAM [Concomitant]
     Active Substance: CLONAZEPAM
  18. DAYVIGO [Concomitant]
     Active Substance: LEMBOREXANT
  19. GABAPENTIN [Concomitant]
     Active Substance: GABAPENTIN
  20. LANTUS [Concomitant]
     Active Substance: INSULIN GLARGINE
  21. LYRICA [Concomitant]
     Active Substance: PREGABALIN
  22. NOVOLIN R [Concomitant]
     Active Substance: INSULIN HUMAN
  23. PREGABALIN [Concomitant]
     Active Substance: PREGABALIN
  24. SERTRALINE HYDROCHLORIDE [Concomitant]
     Active Substance: SERTRALINE HYDROCHLORIDE
  25. TRAMADOL [Concomitant]
     Active Substance: TRAMADOL\TRAMADOL HYDROCHLORIDE
  26. TRAZODONE [Concomitant]
     Active Substance: TRAZODONE HYDROCHLORIDE

REACTIONS (12)
  - Renal failure [Not Recovered/Not Resolved]
  - Acute kidney injury [Recovered/Resolved]
  - Renal impairment [Not Recovered/Not Resolved]
  - Sitting disability [Unknown]
  - Pain [Not Recovered/Not Resolved]
  - Emotional distress [Not Recovered/Not Resolved]
  - Anxiety [Not Recovered/Not Resolved]
  - Anhedonia [Not Recovered/Not Resolved]
  - Osteopenia [Not Recovered/Not Resolved]
  - Depression [Unknown]
  - Dysuria [Unknown]
  - Dysstasia [Unknown]

NARRATIVE: CASE EVENT DATE: 20100101
